FAERS Safety Report 6312911-0 (Version None)
Quarter: 2009Q3

REPORT INFORMATION
  Report Type: 
  Country: None (occurrence: None)
  Receive Date: 20090818
  Receipt Date: 20090810
  Transmission Date: 20100115
  Serious: Yes (Hospitalization)
  Sender: FDA-Public Use
  Company Number: JP-ASTRAZENECA-2009AP02862

PATIENT
  Age: 43 Year
  Sex: Female
  Weight: 58 kg

DRUGS (4)
  1. IRESSA [Suspect]
     Indication: LUNG ADENOCARCINOMA
     Route: 048
     Dates: start: 20090129, end: 20090408
  2. CODEINE PHOSPHATE [Concomitant]
     Indication: COUGH
     Route: 048
     Dates: start: 20090129
  3. LAC-B [Concomitant]
     Indication: DIARRHOEA
     Route: 048
     Dates: start: 20090202
  4. MOBIC [Concomitant]
     Indication: CANCER PAIN
     Route: 048
     Dates: start: 20090218

REACTIONS (2)
  - DIARRHOEA [None]
  - ORGANISING PNEUMONIA [None]
